FAERS Safety Report 4619847-1 (Version None)
Quarter: 2005Q1

REPORT INFORMATION
  Report Type: 
  Country: None (occurrence: None)
  Receive Date: 20050328
  Receipt Date: 20050317
  Transmission Date: 20050727
  Serious: Yes (Death, Life-Threatening, Other)
  Sender: FDA-Public Use
  Company Number: GB-JNJFOC-20050304446

PATIENT
  Sex: Female
  Weight: 53 kg

DRUGS (14)
  1. REMICADE [Suspect]
     Indication: RHEUMATOID ARTHRITIS
     Route: 042
  2. WARFARIN SODIUM [Concomitant]
     Route: 065
  3. BUMETANIDE [Concomitant]
     Route: 065
  4. DIGOXIN [Concomitant]
     Route: 065
  5. QUININE SULPHATE [Concomitant]
     Route: 065
  6. LEFLUNOMIDE [Concomitant]
     Route: 065
  7. TYLEX [Concomitant]
     Route: 065
  8. TYLEX [Concomitant]
     Route: 065
  9. TYLEX [Concomitant]
     Route: 065
  10. SIMVASTATIN [Concomitant]
     Route: 065
  11. VERAPAMIL [Concomitant]
     Route: 065
  12. PREDNISOLONE [Concomitant]
     Route: 065
  13. ALBUTEROL [Concomitant]
     Route: 065
  14. ATROVENT [Concomitant]
     Route: 065

REACTIONS (1)
  - CHRONIC OBSTRUCTIVE PULMONARY DISEASE [None]
